FAERS Safety Report 6301961-6 (Version None)
Quarter: 2009Q3

REPORT INFORMATION
  Report Type: 
  Country: None (occurrence: None)
  Receive Date: 20090805
  Receipt Date: 20090729
  Transmission Date: 20100115
  Serious: Yes (Other)
  Sender: FDA-Public Use
  Company Number: 341869

PATIENT
  Age: 35 Year

DRUGS (5)
  1. METHOTREXATE [Suspect]
     Indication: BREAST CANCER
  2. MITOXANTRONE HYDROCHLORIDE [Suspect]
     Indication: BREAST CANCER
  3. VINORELBINE [Suspect]
     Indication: BREAST CANCER
  4. FLUOROURACIL [Suspect]
     Indication: BREAST CANCER
  5. CYCLOPHOSPHAMIDE [Suspect]
     Indication: BREAST CANCER

REACTIONS (2)
  - ACUTE MYELOID LEUKAEMIA [None]
  - NEOPLASM RECURRENCE [None]
